FAERS Safety Report 4657474-0 (Version None)
Quarter: 2005Q2

REPORT INFORMATION
  Report Type: 
  Country: None (occurrence: None)
  Receive Date: 20050509
  Receipt Date: 20050509
  Transmission Date: 20051028
  Serious: Yes (Hospitalization)
  Sender: FDA-Public Use
  Company Number: None

PATIENT
  Age: 68 Year
  Sex: Male
  Weight: 67 kg

DRUGS (11)
  1. GATIFLOXACIN [Suspect]
     Indication: DIABETIC FOOT
     Dosage: 400 MG QDAY ORAL
     Route: 048
     Dates: start: 20041220, end: 20051224
  2. LANOXIN [Concomitant]
  3. FUROSEMIDE [Concomitant]
  4. GEMFIBROZIL [Concomitant]
  5. GLYBURIDE [Concomitant]
  6. LISINOPRIL [Concomitant]
  7. METFORMIN [Concomitant]
  8. POLYMIXIN [Concomitant]
  9. BACITRACIN [Concomitant]
  10. SIMVASTATIN [Concomitant]
  11. WARFARIN [Concomitant]

REACTIONS (1)
  - HYPOGLYCAEMIA [None]
